FAERS Safety Report 5440837-3 (Version None)
Quarter: 2007Q3

REPORT INFORMATION
  Report Type: 
  Country: None (occurrence: None)
  Receive Date: 20070731
  Receipt Date: 20070523
  Transmission Date: 20080115
  Serious: No
  Sender: FDA-Public Use
  Company Number: US200705006239

PATIENT
  Age: 41 Year
  Sex: Female

DRUGS (4)
  1. BYETTA [Suspect]
     Indication: TYPE 2 DIABETES MELLITUS
     Dosage: 10 UG, DAILY (1/D), SUBCUTANEOUS
     Route: 058
     Dates: start: 20070522
  2. GLUCOPHAGE [Concomitant]
  3. GLYBURIDE [Concomitant]
  4. ACTOS [Concomitant]

REACTIONS (2)
  - INCORRECT DOSE ADMINISTERED [None]
  - NAUSEA [None]
